FAERS Safety Report 16638778 (Version 2)
Quarter: 2020Q1

REPORT INFORMATION
  Report Type: Report from Study
  Country: CA (occurrence: CA)
  Receive Date: 20190726
  Receipt Date: 20200106
  Transmission Date: 20200409
  Serious: Yes (Other)
  Sender: FDA-Public Use
  Company Number: CA-PFIZER INC-2019316976

PATIENT
  Age: 72 Year
  Sex: Male
  Weight: 87 kg

DRUGS (35)
  1. ACTEMRA [Suspect]
     Active Substance: TOCILIZUMAB
     Dosage: 728 MG, UNK( 1 EVERY 4 WEEK(S))
     Route: 042
     Dates: start: 20120918
  2. ACTEMRA [Suspect]
     Active Substance: TOCILIZUMAB
     Dosage: UNK
     Route: 042
     Dates: start: 20130402
  3. ACTEMRA [Suspect]
     Active Substance: TOCILIZUMAB
     Dosage: UNK
     Route: 042
     Dates: start: 20150106
  4. ACTEMRA [Suspect]
     Active Substance: TOCILIZUMAB
     Dosage: UNK
     Route: 042
     Dates: start: 20160204
  5. ACTEMRA [Suspect]
     Active Substance: TOCILIZUMAB
     Dosage: UNK
     Route: 042
     Dates: start: 20171011
  6. SYSTANE (POLYETHYLENE GLYCOL 400\PROPYLENE GLYCOL) [Suspect]
     Active Substance: POLYETHYLENE GLYCOL 400\PROPYLENE GLYCOL
     Indication: NASAL CRUSTING
     Dosage: UNK
     Route: 045
     Dates: start: 20160201
  7. ACTEMRA [Suspect]
     Active Substance: TOCILIZUMAB
     Dosage: 744 MG, UNK( 1 EVERY 4 WEEK(S))
     Route: 042
     Dates: start: 20110802
  8. ACTEMRA [Suspect]
     Active Substance: TOCILIZUMAB
     Dosage: 744 MG, UNK( 1 EVERY 4 WEEK(S))
     Route: 042
  9. ACTEMRA [Suspect]
     Active Substance: TOCILIZUMAB
     Dosage: UNK
     Route: 042
     Dates: start: 20160502
  10. ACTEMRA [Suspect]
     Active Substance: TOCILIZUMAB
     Dosage: 704 MG, UNK
     Route: 042
     Dates: start: 2018
  11. ACTEMRA [Suspect]
     Active Substance: TOCILIZUMAB
     Dosage: UNK
     Route: 042
  12. ACTEMRA [Suspect]
     Active Substance: TOCILIZUMAB
     Dosage: 744 MG, UNK( 1 EVERY 4 WEEK(S))
     Route: 042
  13. ACTEMRA [Suspect]
     Active Substance: TOCILIZUMAB
     Dosage: UNK
     Route: 042
     Dates: start: 20130402
  14. ACTEMRA [Suspect]
     Active Substance: TOCILIZUMAB
     Dosage: 704 MG, UNK
     Route: 042
     Dates: start: 2018
  15. ISOSORBIDE MONONITRATE. [Concomitant]
     Active Substance: ISOSORBIDE MONONITRATE
     Dosage: UNK
  16. ACTEMRA [Suspect]
     Active Substance: TOCILIZUMAB
     Indication: RHEUMATOID ARTHRITIS
     Dosage: 745 MG, UNK( 1 EVERY 4 WEEK(S))
     Route: 042
  17. ACTEMRA [Suspect]
     Active Substance: TOCILIZUMAB
     Dosage: 728 MG, UNK( 1 EVERY 4 WEEK(S))
     Route: 042
     Dates: start: 20120529
  18. ACTEMRA [Suspect]
     Active Substance: TOCILIZUMAB
     Dosage: 704 MG, UNK( 1 EVERY 4 WEEK(S))
     Route: 042
     Dates: start: 20141014
  19. ACTEMRA [Suspect]
     Active Substance: TOCILIZUMAB
     Dosage: 704 MG, UNK( 1 EVERY 4 WEEK(S))
     Route: 042
     Dates: start: 20141014
  20. ACTEMRA [Suspect]
     Active Substance: TOCILIZUMAB
     Dosage: UNK
     Route: 042
     Dates: start: 20160502
  21. ACTEMRA [Suspect]
     Active Substance: TOCILIZUMAB
     Dosage: UNK
     Route: 042
     Dates: start: 20160705
  22. NORVASC [Suspect]
     Active Substance: AMLODIPINE BESYLATE
     Dosage: UNK
     Dates: end: 20160630
  23. ACTEMRA [Suspect]
     Active Substance: TOCILIZUMAB
     Dosage: 728 MG, UNK( 1 EVERY 4 WEEK(S))
     Route: 042
     Dates: start: 20120918
  24. ASAPHEN [Concomitant]
     Active Substance: ASPIRIN
     Dosage: UNK
  25. ACTEMRA [Suspect]
     Active Substance: TOCILIZUMAB
     Dosage: UNK
     Route: 042
  26. ACTEMRA [Suspect]
     Active Substance: TOCILIZUMAB
     Dosage: 744 MG, UNK( 1 EVERY 4 WEEK(S))
     Route: 042
  27. ACTEMRA [Suspect]
     Active Substance: TOCILIZUMAB
     Dosage: UNK
     Route: 042
     Dates: start: 20160609
  28. FOLIC ACID. [Concomitant]
     Active Substance: FOLIC ACID
     Dosage: UNK
  29. ACTEMRA [Suspect]
     Active Substance: TOCILIZUMAB
     Dosage: UNK
     Route: 042
     Dates: start: 20130402
  30. NEXIUM I.V. [Concomitant]
     Active Substance: ESOMEPRAZOLE SODIUM
     Dosage: UNK
  31. ACTEMRA [Suspect]
     Active Substance: TOCILIZUMAB
     Dosage: 704 MG, UNK
     Route: 042
  32. ACTEMRA [Suspect]
     Active Substance: TOCILIZUMAB
     Dosage: UNK
     Route: 042
     Dates: start: 20160204
  33. ACTEMRA [Suspect]
     Active Substance: TOCILIZUMAB
     Dosage: UNK
     Route: 042
     Dates: start: 20160705
  34. SYSTANE (POLYETHYLENE GLYCOL 400\PROPYLENE GLYCOL) [Suspect]
     Active Substance: POLYETHYLENE GLYCOL 400\PROPYLENE GLYCOL
     Indication: NASAL CRUSTING
  35. AMLODIPINE BESILATE [Concomitant]
     Active Substance: AMLODIPINE BESYLATE
     Dosage: UNK

REACTIONS (38)
  - Cough [Recovered/Resolved]
  - Dry skin [Not Recovered/Not Resolved]
  - Essential tremor [Not Recovered/Not Resolved]
  - Blood pressure diastolic decreased [Unknown]
  - Body temperature decreased [Unknown]
  - Drug ineffective [Unknown]
  - Groin pain [Unknown]
  - Platelet count decreased [Unknown]
  - Pruritus [Not Recovered/Not Resolved]
  - Sputum discoloured [Recovered/Resolved]
  - Epistaxis [Unknown]
  - Excessive cerumen production [Unknown]
  - Neck pain [Not Recovered/Not Resolved]
  - Peripheral coldness [Unknown]
  - Poor venous access [Unknown]
  - White blood cell count decreased [Unknown]
  - Chest discomfort [Unknown]
  - Ear pain [Recovered/Resolved]
  - Hypoaesthesia [Unknown]
  - Nasal congestion [Recovered/Resolved]
  - Blood pressure systolic increased [Unknown]
  - Peripheral swelling [Unknown]
  - Rhinorrhoea [Unknown]
  - Skin lesion [Not Recovered/Not Resolved]
  - Arthralgia [Not Recovered/Not Resolved]
  - Blood pressure increased [Unknown]
  - Erythema [Unknown]
  - Infusion related reaction [Unknown]
  - Mass [Unknown]
  - Acne [Not Recovered/Not Resolved]
  - Heart rate decreased [Unknown]
  - Nasopharyngitis [Recovered/Resolved]
  - Oropharyngeal pain [Recovered/Resolved]
  - Septic arthritis staphylococcal [Recovered/Resolved]
  - Nasal crusting [Not Recovered/Not Resolved]
  - Oedema peripheral [Not Recovered/Not Resolved]
  - Tooth fracture [Unknown]
  - Hypotension [Unknown]

NARRATIVE: CASE EVENT DATE: 201207
